FAERS Safety Report 10215360 (Version 2)
Quarter: 2014Q2

REPORT INFORMATION
  Report Type: Spontaneous
  Country: US (occurrence: US)
  Receive Date: 20140604
  Receipt Date: 20140610
  Transmission Date: 20141212
  Serious: Yes (Other)
  Sender: FDA-Public Use
  Company Number: US-DRREDDYS-USA/USA/14/0040772

PATIENT
  Age: 10 Year
  Sex: Female
  Weight: 32.6 kg

DRUGS (5)
  1. LAMOTRIGINE TABLETS [Suspect]
     Indication: GENERALISED TONIC-CLONIC SEIZURE
     Route: 048
     Dates: start: 201312
  2. LAMOTRIGINE TABLETS [Suspect]
     Route: 048
     Dates: start: 201312
  3. VIMPAT [Suspect]
     Indication: CONVULSION
     Route: 065
     Dates: start: 201405
  4. ONFI [Suspect]
     Indication: CONVULSION
     Route: 065
     Dates: start: 201404
  5. TRILEPTAL [Suspect]
     Indication: CONVULSION
     Route: 065

REACTIONS (8)
  - Convulsion [Not Recovered/Not Resolved]
  - Partial seizures [Not Recovered/Not Resolved]
  - Drug ineffective [Unknown]
  - Vision blurred [Not Recovered/Not Resolved]
  - Mood altered [Not Recovered/Not Resolved]
  - Fatigue [Not Recovered/Not Resolved]
  - Cognitive disorder [Not Recovered/Not Resolved]
  - Product quality issue [Unknown]
